FAERS Safety Report 17426968 (Version 1)
Quarter: 2020Q1

REPORT INFORMATION
  Report Type: Spontaneous
  Country: CA (occurrence: CA)
  Receive Date: 20200218
  Receipt Date: 20200218
  Transmission Date: 20200409
  Serious: Yes (Other)
  Sender: FDA-Public Use
  Company Number: CA-TEVA-2020-CA-1184613

PATIENT
  Age: 45 Year
  Sex: Male

DRUGS (6)
  1. SALBUTAMOL HFA [Concomitant]
     Active Substance: ALBUTEROL
  2. VITAMIN C [Concomitant]
     Active Substance: ASCORBIC ACID
  3. ZANTAC [Concomitant]
     Active Substance: RANITIDINE HYDROCHLORIDE
  4. RAMIPRIL. [Suspect]
     Active Substance: RAMIPRIL
     Indication: HYPERTENSION
     Dosage: 2.5 MILLIGRAM DAILY;
     Route: 048
  5. VITAMIN D [Concomitant]
     Active Substance: VITAMIN D NOS
  6. MULTIVITAMINE(S) [Concomitant]
     Active Substance: VITAMINS

REACTIONS (4)
  - Pancreatitis acute [Recovering/Resolving]
  - Condition aggravated [Recovering/Resolving]
  - Abdominal pain upper [Recovering/Resolving]
  - Vomiting [Recovering/Resolving]
